FAERS Safety Report 17166355 (Version 3)
Quarter: 2020Q1

REPORT INFORMATION
  Report Type: Spontaneous
  Country: GB (occurrence: GB)
  Receive Date: 20191217
  Receipt Date: 20200116
  Transmission Date: 20200409
  Serious: Yes (Death, Hospitalization, Other)
  Sender: FDA-Public Use
  Company Number: GB-MYLANLABS-2019M1123702

PATIENT
  Age: 84 Year
  Sex: Female

DRUGS (1)
  1. CLOZARIL [Suspect]
     Active Substance: CLOZAPINE
     Indication: SCHIZOPHRENIA
     Dosage: UNK
     Route: 048
     Dates: start: 20130128, end: 20191124

REACTIONS (6)
  - Fall [Unknown]
  - Lower respiratory tract infection [Unknown]
  - Syncope [Unknown]
  - Terminal state [Fatal]
  - Cardiac failure congestive [Fatal]
  - Somnolence [Unknown]

NARRATIVE: CASE EVENT DATE: 201911
